FAERS Safety Report 7718671-0 (Version None)
Quarter: 2011Q3

REPORT INFORMATION
  Report Type: 
  Country: None (occurrence: None)
  Receive Date: 20110830
  Receipt Date: 20110822
  Transmission Date: 20111222
  Serious: Yes (Other)
  Sender: FDA-Public Use
  Company Number: US-NOVOPROD-333958

PATIENT
  Sex: Female
  Weight: 82.993 kg

DRUGS (7)
  1. NEXIUM [Concomitant]
     Indication: ABDOMINAL DISCOMFORT
     Dosage: UNK
  2. LANTUS [Concomitant]
     Indication: TYPE 2 DIABETES MELLITUS
     Dosage: AT NIGHT
  3. ACTOS [Concomitant]
     Indication: TYPE 2 DIABETES MELLITUS
     Dosage: UNK
  4. CYMBALTA [Concomitant]
     Indication: DEPRESSION
     Dosage: 120 MG, QD
  5. CELEBREX [Concomitant]
     Indication: PAIN
     Dosage: 200 MG, QD
  6. LOTREL [Concomitant]
     Indication: HYPERTENSION
     Dosage: UNK
  7. VICTOZA [Suspect]
     Indication: TYPE 2 DIABETES MELLITUS
     Dosage: 0.6 MG, QD
     Route: 058
     Dates: start: 20110716, end: 20110816

REACTIONS (3)
  - DECREASED APPETITE [None]
  - SUICIDAL IDEATION [None]
  - DEPRESSION [None]
